FAERS Safety Report 25874926 (Version 1)
Quarter: 2025Q4

REPORT INFORMATION
  Report Type: Spontaneous
  Country: TR (occurrence: TR)
  Receive Date: 20251002
  Receipt Date: 20251002
  Transmission Date: 20260118
  Serious: Yes (Death)
  Sender: PRINSTON PHARMACEUTICAL
  Company Number: TR-PRINSTON PHARMACEUTICAL INC.-2025PRN00320

PATIENT
  Sex: Male

DRUGS (6)
  1. TADALAFIL [Suspect]
     Active Substance: TADALAFIL
     Indication: Erectile dysfunction
     Dosage: UNK
     Route: 048
  2. ALCOHOL (ALCOHOL) [Concomitant]
     Active Substance: ALCOHOL
     Dosage: UNK
  3. HERBALS\TETRAHYDROCANNABINOL UNSPECIFIED [Concomitant]
     Active Substance: HERBALS\TETRAHYDROCANNABINOL UNSPECIFIED
     Dosage: UNK
  4. COCAINE [Concomitant]
     Active Substance: COCAINE
     Dosage: UNK
  5. BENZOYLECGONINE [Concomitant]
     Active Substance: BENZOYLECGONINE
     Dosage: UNK
  6. ECGONINE METHYL ESTER [Concomitant]
     Active Substance: ECGONINE METHYL ESTER
     Dosage: UNK

REACTIONS (1)
  - Myocardial infarction [Fatal]
